FAERS Safety Report 7265040-6 (Version None)
Quarter: 2011Q1

REPORT INFORMATION
  Report Type: 
  Country: None (occurrence: None)
  Receive Date: 20110131
  Receipt Date: 20110123
  Transmission Date: 20110831
  Serious: Yes (Death, Hospitalization)
  Sender: FDA-Public Use
  Company Number: PH-ASTELLAS-2011JP000545

PATIENT
  Sex: Male

DRUGS (3)
  1. TACROLIMUS [Suspect]
     Indication: IMMUNOSUPPRESSANT DRUG THERAPY
     Route: 048
  2. INSULIN [Concomitant]
     Route: 065
  3. ANTIBIOTICS [Concomitant]
     Route: 048

REACTIONS (2)
  - COUGH [None]
  - PNEUMONIA [None]
